FAERS Safety Report 9932312 (Version 2)
Quarter: 2014Q1

REPORT INFORMATION
  Report Type: Spontaneous
  Country: US (occurrence: US)
  Receive Date: 20140228
  Receipt Date: 20140228
  Transmission Date: 20141002
  Serious: No
  Sender: FDA-Public Use
  Company Number: US-ABBVIE-14P-163-1197309-00

PATIENT
  Age: 48 Year
  Sex: Male
  Weight: 127.12 kg

DRUGS (6)
  1. ANDROGEL 1% [Suspect]
     Indication: BLOOD TESTOSTERONE DECREASED
     Route: 061
     Dates: start: 201109
  2. ANDROGEL 1% [Suspect]
     Dosage: MONDAY-THURSDAY
     Route: 061
     Dates: start: 2013
  3. ANDROGEL 1% [Suspect]
     Dosage: FRIDAY-SUNDAY
     Route: 061
     Dates: start: 2013
  4. ANDROGEL 1% [Suspect]
     Route: 061
     Dates: start: 2011, end: 2013
  5. INSULIN [Concomitant]
     Indication: DIABETES MELLITUS
  6. UNKNOWN BLOOD PRESSURE MEDICATIONS [Concomitant]
     Indication: HYPERTENSION

REACTIONS (4)
  - Therapeutic response unexpected [Not Recovered/Not Resolved]
  - Unevaluable event [Not Recovered/Not Resolved]
  - Unevaluable event [Not Recovered/Not Resolved]
  - Unevaluable event [Not Recovered/Not Resolved]
